FAERS Safety Report 5189584-6 (Version None)
Quarter: 2006Q4

REPORT INFORMATION
  Report Type: 
  Country: None (occurrence: None)
  Receive Date: 20061221
  Receipt Date: 20060609
  Transmission Date: 20070319
  Serious: No
  Sender: FDA-Public Use
  Company Number: US-AMGEN-KDL182495

PATIENT
  Sex: Female

DRUGS (8)
  1. ENBREL [Suspect]
     Indication: RHEUMATOID ARTHRITIS
     Route: 058
     Dates: start: 20041025, end: 20060701
  2. METHOTREXATE [Concomitant]
     Route: 058
     Dates: start: 19990201
  3. PREDNISONE TAB [Concomitant]
  4. DARVOCET-N 100 [Concomitant]
  5. TRAZODONE HCL [Concomitant]
  6. FOLIC ACID [Concomitant]
  7. CYMBALTA [Concomitant]
  8. NABUMETONE [Concomitant]

REACTIONS (1)
  - LOCALISED INFECTION [None]
